FAERS Safety Report 17692233 (Version 2)
Quarter: 2020Q2

REPORT INFORMATION
  Report Type: Spontaneous
  Country: US (occurrence: US)
  Receive Date: 20200422
  Receipt Date: 20200526
  Transmission Date: 20200714
  Serious: No
  Sender: FDA-Public Use
  Company Number: US-PFIZER INC-2020156200

PATIENT
  Age: 58 Year
  Sex: Male
  Weight: 104.3 kg

DRUGS (2)
  1. NICOTROL [Suspect]
     Active Substance: NICOTINE
     Indication: SMOKING CESSATION THERAPY
     Dosage: 2 TO 20 INHALATIONS, DAILY
     Route: 055
     Dates: start: 201811
  2. NICOTROL [Suspect]
     Active Substance: NICOTINE
     Dosage: 2 TO 20 INHALATIONS, DAILY
     Route: 055

REACTIONS (2)
  - Drug ineffective [Not Recovered/Not Resolved]
  - Product physical issue [Unknown]

NARRATIVE: CASE EVENT DATE: 201912
